FAERS Safety Report 11278312 (Version 2)
Quarter: 2015Q3

REPORT INFORMATION
  Report Type: Spontaneous
  Country: US (occurrence: US)
  Receive Date: 20150717
  Receipt Date: 20150901
  Transmission Date: 20151125
  Serious: No
  Sender: FDA-Public Use
  Company Number: US-009507513-1507USA006377

PATIENT
  Age: 90 Year
  Sex: Female

DRUGS (1)
  1. JANUVIA [Suspect]
     Active Substance: SITAGLIPTIN PHOSPHATE
     Indication: DIABETES MELLITUS
     Dosage: UNKNOWN DOSE/ ONCE PER DAY
     Route: 048
     Dates: start: 2011, end: 201507

REACTIONS (3)
  - Alopecia [Recovered/Resolved]
  - Weight decreased [Recovered/Resolved]
  - Rash [Recovered/Resolved]
